FAERS Safety Report 6467089-X (Version None)
Quarter: 2009Q4

REPORT INFORMATION
  Report Type: 
  Country: None (occurrence: None)
  Receive Date: 20091202
  Receipt Date: 20091120
  Transmission Date: 20100525
  Serious: Yes (Hospitalization)
  Sender: FDA-Public Use
  Company Number: NO-PFIZER INC-2009300603

PATIENT
  Age: 84 Year
  Sex: Female

DRUGS (1)
  1. TOVIAZ [Suspect]
     Indication: POLYURIA
     Route: 048
     Dates: start: 20091001

REACTIONS (2)
  - RENAL IMPAIRMENT [None]
  - URINARY RETENTION [None]
